FAERS Safety Report 5591228-6 (Version None)
Quarter: 2008Q1

REPORT INFORMATION
  Report Type: 
  Country: None (occurrence: None)
  Receive Date: 20080115
  Receipt Date: 20071205
  Transmission Date: 20080703
  Serious: No
  Sender: FDA-Public Use
  Company Number: US-ABBOTT-07P-163-0427596-00

PATIENT
  Sex: Female

DRUGS (1)
  1. HYTRIN [Suspect]
     Indication: HYPERTENSION

REACTIONS (1)
  - BLOOD PRESSURE DECREASED [None]
